FAERS Safety Report 5019083-3 (Version None)
Quarter: 2006Q2

REPORT INFORMATION
  Report Type: 
  Country: None (occurrence: None)
  Receive Date: 20060606
  Receipt Date: 20060524
  Transmission Date: 20061013
  Serious: Yes (Death)
  Sender: FDA-Public Use
  Company Number: MY-MERCK-0605MYS00009

PATIENT
  Age: 47 Year
  Sex: Female

DRUGS (3)
  1. CANCIDAS [Suspect]
     Indication: SYSTEMIC MYCOSIS
     Route: 065
     Dates: start: 20060523, end: 20060523
  2. VORICONAZOLE [Concomitant]
     Route: 065
  3. AMPHOTERICIN B [Concomitant]
     Route: 065

REACTIONS (1)
  - ACUTE MYELOID LEUKAEMIA [None]
